FAERS Safety Report 8819395 (Version 2)
Quarter: 2012Q4

REPORT INFORMATION
  Report Type: 
  Country: US (occurrence: None)
  Receive Date: 20121003
  Receipt Date: 20121012
  Transmission Date: 20130627
  Serious: Yes (Death, Hospitalization, Other)
  Sender: FDA-Public Use
  Company Number: ACO_32189_2012

PATIENT
  Age: 52 Year
  Sex: Male

DRUGS (8)
  1. AMPYRA [Suspect]
     Indication: DRUG USE FOR UNKNOWN INDICATION
     Dates: start: 2010, end: 20120718
  2. PERCOCET [Suspect]
     Indication: PAIN
  3. ANALGESICS [Suspect]
     Indication: DRUG USE FOR UNKNOWN INDICATION
  4. XANAX (ALPRAZOLAM) [Concomitant]
  5. TRAZODONE (TRAZODONE HYDROCHLORIDE) [Concomitant]
  6. LISINOPRIL (LISINOPRIL) [Concomitant]
  7. AMLODIPINE BESYLATE (AMLODIPINE BESILATE) [Concomitant]
  8. BETASERON (ALBUMIN HUMAN, GLUCOSE, INTERFERON BETA) [Concomitant]

REACTIONS (8)
  - Respiratory failure [None]
  - Convulsion [None]
  - Respiratory arrest [None]
  - Multiple sclerosis [None]
  - Drug interaction [None]
  - Spinal disorder [None]
  - Bronchitis [None]
  - Therapeutic response unexpected [None]
